FAERS Safety Report 21794986 (Version 1)
Quarter: 2022Q4

REPORT INFORMATION
  Report Type: Spontaneous
  Country: US (occurrence: US)
  Receive Date: 20221229
  Receipt Date: 20221229
  Transmission Date: 20230113
  Serious: Yes (Hospitalization)
  Sender: FDA-Public Use
  Company Number: US-AMGEN-USASP2022221869

PATIENT
  Age: 82 Year
  Sex: Female
  Weight: 54.8 kg

DRUGS (1)
  1. KANJINTI [Suspect]
     Active Substance: TRASTUZUMAB-ANNS
     Indication: Product used for unknown indication
     Dosage: 370 MILLIGRAM
     Route: 065

REACTIONS (2)
  - Infection [Unknown]
  - Dizziness [Unknown]

NARRATIVE: CASE EVENT DATE: 20221107
